FAERS Safety Report 8966261 (Version 1)
Quarter: 2012Q4

REPORT INFORMATION
  Report Type: 
  Country: SE (occurrence: SE)
  Receive Date: 20121217
  Receipt Date: 20121217
  Transmission Date: 20130627
  Serious: Yes (Hospitalization, Other)
  Sender: FDA-Public Use
  Company Number: SE-PFIZER INC-2012288265

PATIENT
  Age: 41 Year
  Sex: Female
  Weight: 60 kg

DRUGS (20)
  1. GENOTROPIN [Suspect]
     Dosage: 0.5 mg, 1x/day,7 injections/week
     Route: 058
     Dates: start: 20020115
  2. ETALPHA [Concomitant]
     Indication: HYPOPARATHYROIDISM
     Dosage: UNK
     Dates: start: 19820515
  3. PREMARIN TABLET [Concomitant]
     Indication: LUTEINIZING HORMONE DEFICIENCY
     Dosage: UNK
     Dates: start: 19860601
  4. PREMARIN TABLET [Concomitant]
     Indication: FOLLICLE-STIMULATING HORMONE DEFICIENCY
  5. PREMARIN TABLET [Concomitant]
     Indication: OVARIAN DISORDER
  6. PREMARIN TABLET [Concomitant]
     Indication: HYPOGONADISM
  7. CORTONE [Concomitant]
     Indication: PYREXIA OF UNKNOWN ORIGIN
     Dosage: UNK
     Dates: start: 19970131
  8. FOLLICLE-STIMULATING HORMONE, HUMAN [Concomitant]
     Indication: INFERTILITY FEMALE
     Dosage: UNK
     Dates: start: 19970924
  9. PROFASI [Concomitant]
     Indication: INFERTILITY FEMALE
     Dosage: UNK
     Dates: start: 19971013
  10. PROGESTERONE [Concomitant]
     Indication: LUTEINIZING HORMONE DEFICIENCY
     Dosage: UNK
     Dates: start: 19971020
  11. PROGESTERONE [Concomitant]
     Indication: FOLLICLE-STIMULATING HORMONE DEFICIENCY
  12. PROGESTERONE [Concomitant]
     Indication: OVARIAN DISORDER
  13. PROGESTERONE [Concomitant]
     Indication: HYPOGONADISM
  14. OESTROGEN ^HOLZINGER^ [Concomitant]
     Indication: LUTEINIZING HORMONE DEFICIENCY
     Dosage: UNK
     Dates: start: 19990219
  15. OESTROGEN ^HOLZINGER^ [Concomitant]
     Indication: FOLLICLE-STIMULATING HORMONE DEFICIENCY
  16. OESTROGEN ^HOLZINGER^ [Concomitant]
     Indication: OVARIAN DISORDER
  17. OESTROGEN ^HOLZINGER^ [Concomitant]
     Indication: HYPOGONADISM
  18. HYDROCORTISONE [Concomitant]
     Indication: ACTH DECREASED
     Dosage: UNK
     Dates: start: 19990928
  19. LEVOTHYROXINE [Concomitant]
     Indication: TSH DECREASED
     Dosage: UNK
     Dates: start: 19770101
  20. LEVOTHYROXINE [Concomitant]
     Indication: PRIMARY HYPOTHYROIDISM

REACTIONS (1)
  - Nephritis [Unknown]
